FAERS Safety Report 5547789-6 (Version None)
Quarter: 2007Q4

REPORT INFORMATION
  Report Type: 
  Country: None (occurrence: None)
  Receive Date: 20071211
  Receipt Date: 20070304
  Transmission Date: 20080405
  Serious: No
  Sender: FDA-Public Use
  Company Number: US-AMGEN-KDL213655

PATIENT
  Sex: Female

DRUGS (2)
  1. ENBREL [Suspect]
     Indication: JUVENILE ARTHRITIS
     Route: 058
     Dates: start: 20061217
  2. METHOTREXATE [Concomitant]
     Dates: start: 20040101

REACTIONS (7)
  - ABDOMINAL DISTENSION [None]
  - ABDOMINAL PAIN [None]
  - FAECALOMA [None]
  - HEADACHE [None]
  - POLYMENORRHOEA [None]
  - SMEAR CERVIX ABNORMAL [None]
  - THYROID FUNCTION TEST ABNORMAL [None]
